FAERS Safety Report 7170705-0 (Version None)
Quarter: 2010Q4

REPORT INFORMATION
  Report Type: 
  Country: None (occurrence: None)
  Receive Date: 20101217
  Receipt Date: 20101213
  Transmission Date: 20110411
  Serious: Yes (Death)
  Sender: FDA-Public Use
  Company Number: JP-PFIZER INC-2010157236

PATIENT
  Age: 74 Year
  Sex: Male

DRUGS (5)
  1. ZYVOX [Suspect]
     Indication: STAPHYLOCOCCAL INFECTION
     Dosage: UNK
     Route: 041
     Dates: start: 20101118, end: 20101121
  2. CEFOCEF [Concomitant]
     Dosage: UNK
     Route: 065
     Dates: start: 20101109, end: 20101124
  3. OMEPRAL [Concomitant]
     Dosage: UNK
     Route: 065
     Dates: start: 20101119
  4. TARGOCID [Concomitant]
     Dosage: UNK
     Route: 065
     Dates: start: 20101122, end: 20101124
  5. ZOVIRAX [Concomitant]
     Dosage: UNK
     Route: 065
     Dates: start: 20101124

REACTIONS (2)
  - PNEUMONIA STAPHYLOCOCCAL [None]
  - SKIN EROSION [None]
